FAERS Safety Report 6520044-3 (Version None)
Quarter: 2009Q4

REPORT INFORMATION
  Report Type: 
  Country: None (occurrence: None)
  Receive Date: 20091229
  Receipt Date: 20091215
  Transmission Date: 20100525
  Serious: Yes (Other)
  Sender: FDA-Public Use
  Company Number: PHHY2009JP55581

PATIENT
  Sex: Female

DRUGS (1)
  1. TEGRETOL [Suspect]
     Indication: HEADACHE
     Dosage: 200 MG DAILY
     Route: 048

REACTIONS (2)
  - PETIT MAL EPILEPSY [None]
  - SYNCOPE [None]
